FAERS Safety Report 20622445 (Version 1)
Quarter: 2022Q1

REPORT INFORMATION
  Report Type: Spontaneous
  Country: CA (occurrence: CA)
  Receive Date: 20220322
  Receipt Date: 20220322
  Transmission Date: 20220423
  Serious: Yes (Death)
  Sender: FDA-Public Use
  Company Number: CA-PFIZER INC-202200402201

PATIENT
  Age: 84 Year
  Sex: Female

DRUGS (1)
  1. DEFEROXAMINE MESYLATE [Suspect]
     Active Substance: DEFEROXAMINE MESYLATE
     Indication: Chelation therapy
     Dosage: 3000 MG, WEEKLY
     Route: 042

REACTIONS (9)
  - Diarrhoea [Fatal]
  - Endotracheal intubation [Fatal]
  - Iron overload [Fatal]
  - Loss of consciousness [Fatal]
  - Medical induction of coma [Fatal]
  - Organ failure [Fatal]
  - Respiratory arrest [Fatal]
  - Vomiting [Fatal]
  - Death [Fatal]
